FAERS Safety Report 7056344-0 (Version None)
Quarter: 2010Q4

REPORT INFORMATION
  Report Type: 
  Country: None (occurrence: None)
  Receive Date: 20101021
  Receipt Date: 20101008
  Transmission Date: 20110411
  Serious: Yes (Hospitalization)
  Sender: FDA-Public Use
  Company Number: IT-MYLANLABS-2010S1018591

PATIENT
  Sex: Male

DRUGS (1)
  1. CIPROFLOXACIN [Suspect]
     Indication: PRODUCT USED FOR UNKNOWN INDICATION

REACTIONS (5)
  - GENERALISED ERYTHEMA [None]
  - HAEMOLYTIC URAEMIC SYNDROME [None]
  - HEPATITIS TOXIC [None]
  - LEUKOPENIA [None]
  - PETIT MAL EPILEPSY [None]
